FAERS Safety Report 6857082-7 (Version None)
Quarter: 2010Q3

REPORT INFORMATION
  Report Type: 
  Country: None (occurrence: None)
  Receive Date: 20100719
  Receipt Date: 20100712
  Transmission Date: 20110219
  Serious: Yes (Death)
  Sender: FDA-Public Use
  Company Number: A0870970A

PATIENT
  Age: 48 Year
  Sex: Male

DRUGS (3)
  1. LAMICTAL [Suspect]
     Indication: DEPRESSION
     Dates: start: 20091101
  2. LEXAPRO [Suspect]
     Indication: DEPRESSION
     Dates: start: 20091101
  3. FENTANYL [Suspect]
     Indication: OSTEOPOROSIS
     Dates: start: 20091101

REACTIONS (6)
  - COMPLETED SUICIDE [None]
  - DEPENDENCE [None]
  - DEPRESSION [None]
  - INTENTIONAL DRUG MISUSE [None]
  - LOSS OF CONSCIOUSNESS [None]
  - WITHDRAWAL SYNDROME [None]
